FAERS Safety Report 16635495 (Version 1)
Quarter: 2019Q3

REPORT INFORMATION
  Report Type: Spontaneous
  Country: US (occurrence: US)
  Receive Date: 20190726
  Receipt Date: 20190726
  Transmission Date: 20191004
  Serious: Yes (Other)
  Sender: FDA-Public Use
  Company Number: US-ACCORD-149122

PATIENT
  Age: 65 Year
  Sex: Male

DRUGS (3)
  1. CARBIDOPA/LEVODOPA [Suspect]
     Active Substance: CARBIDOPA\LEVODOPA
     Indication: PARKINSON^S DISEASE
     Dosage: STRENGTH 25 MG/100 MG
  2. CARBIDOPA/LEVODOPA [Suspect]
     Active Substance: CARBIDOPA\LEVODOPA
     Indication: PARKINSON^S DISEASE
     Dosage: DOSING OF LEVODOPA WAS REDUCED, AND AN EXTRA DOSE WAS ADDED (600 MG TOTAL DAILY DOSE OF LEVODOPA)
  3. CARBIDOPA/LEVODOPA [Suspect]
     Active Substance: CARBIDOPA\LEVODOPA
     Indication: PARKINSON^S DISEASE
     Dosage: DOSE OF LEVODOPA WAS INCREASED TO 400 MG DAILY

REACTIONS (3)
  - Dyskinesia [Recovering/Resolving]
  - Freezing phenomenon [Unknown]
  - On and off phenomenon [Recovering/Resolving]
